FAERS Safety Report 26115365 (Version 1)
Quarter: 2025Q4

REPORT INFORMATION
  Report Type: Spontaneous
  Country: CA (occurrence: CA)
  Receive Date: 20251203
  Receipt Date: 20251203
  Transmission Date: 20260118
  Serious: Yes (Other)
  Sender: ACCORD
  Company Number: None

PATIENT
  Age: 2 Decade
  Sex: Male

DRUGS (2)
  1. QUETIAPINE [Suspect]
     Active Substance: QUETIAPINE
     Indication: Bipolar disorder
     Dosage: 1 EVERY 1 DAY
     Route: 048
  2. ARIPIPRAZOLE [Suspect]
     Active Substance: ARIPIPRAZOLE
     Indication: Bipolar disorder
     Route: 048

REACTIONS (7)
  - Drug dependence [Unknown]
  - Sedation [Unknown]
  - Depressed mood [Unknown]
  - Product prescribing issue [Unknown]
  - Apathy [Unknown]
  - Condition aggravated [Unknown]
  - Libido decreased [Unknown]
